FAERS Safety Report 19908326 (Version 1)
Quarter: 2021Q4

REPORT INFORMATION
  Report Type: Spontaneous
  Country: US (occurrence: US)
  Receive Date: 20211001
  Receipt Date: 20211001
  Transmission Date: 20220303
  Serious: No
  Sender: FDA-Public Use
  Company Number: US-TEIKOKU PHARMA USA-TPU2021-00888

PATIENT
  Sex: Female
  Weight: 63.56 kg

DRUGS (1)
  1. LIDOCAINE PATCH [Suspect]
     Active Substance: LIDOCAINE
     Indication: Abdominal pain upper
     Route: 061
     Dates: start: 202108

REACTIONS (1)
  - Incorrect product administration duration [Recovered/Resolved]
